FAERS Safety Report 5899345-8 (Version None)
Quarter: 2008Q3

REPORT INFORMATION
  Report Type: 
  Country: None (occurrence: None)
  Receive Date: 20080924
  Receipt Date: 20080916
  Transmission Date: 20090109
  Serious: Yes (Hospitalization)
  Sender: FDA-Public Use
  Company Number: 2008BI020860

PATIENT
  Age: 46 Year
  Sex: Female

DRUGS (2)
  1. AVONEX [Suspect]
     Indication: MULTIPLE SCLEROSIS
     Dosage: IM; 30 UG; QW; IM; 30 UG; QW; IM
     Route: 030
     Dates: start: 20040801
  2. AVONEX [Suspect]
     Indication: MULTIPLE SCLEROSIS
     Dosage: IM; 30 UG; QW; IM; 30 UG; QW; IM
     Route: 030
     Dates: start: 20071101

REACTIONS (1)
  - CATHETER PLACEMENT [None]
